FAERS Safety Report 15214064 (Version 3)
Quarter: 2018Q3

REPORT INFORMATION
  Report Type: Report from Study
  Country: CA (occurrence: CA)
  Receive Date: 20180730
  Receipt Date: 20180920
  Transmission Date: 20181010
  Serious: Yes (Other)
  Sender: FDA-Public Use
  Company Number: PHHY2018CA073461

PATIENT
  Age: 52 Year
  Sex: Male

DRUGS (2)
  1. SANDOSTATIN LAR DEPOT [Suspect]
     Active Substance: OCTREOTIDE ACETATE
     Indication: CARCINOID TUMOUR
     Dosage: 20 MG, Q4W
     Route: 030
     Dates: start: 20180420
  2. AMLODIPINE [Suspect]
     Active Substance: AMLODIPINE BESYLATE
     Indication: BLOOD PRESSURE INCREASED
     Dosage: 1 DF, QD
     Route: 048

REACTIONS (14)
  - Blood pressure increased [Unknown]
  - Depression [Unknown]
  - Gastric disorder [Unknown]
  - Alopecia [Unknown]
  - Increased appetite [Unknown]
  - Bone pain [Unknown]
  - Dyspnoea [Unknown]
  - Injection site pain [Recovered/Resolved]
  - Hyperhidrosis [Unknown]
  - Weight increased [Unknown]
  - Fatigue [Unknown]
  - Somnolence [Unknown]
  - Stress [Unknown]
  - Malaise [Unknown]

NARRATIVE: CASE EVENT DATE: 20180420
